FAERS Safety Report 5871789-X (Version None)
Quarter: 2008Q3

REPORT INFORMATION
  Report Type: 
  Country: None (occurrence: None)
  Receive Date: 20080904
  Receipt Date: 20080904
  Transmission Date: 20090109
  Serious: Yes (Hospitalization)
  Sender: FDA-Public Use
  Company Number: None

PATIENT
  Sex: Male
  Weight: 69.5 kg

DRUGS (3)
  1. CYTARABINE [Suspect]
     Dosage: 28480 MG
     Dates: start: 20080816, end: 20080820
  2. ETOPOSIDE [Suspect]
     Dosage: 2500 MG
     Dates: end: 20080820
  3. NEUPOGEN [Suspect]
     Dosage: 4680 MCG
     Dates: end: 20080903

REACTIONS (8)
  - CHILLS [None]
  - COLITIS [None]
  - HYPOTENSION [None]
  - MYALGIA [None]
  - PAIN [None]
  - PANCYTOPENIA [None]
  - PRESYNCOPE [None]
  - PYREXIA [None]
